FAERS Safety Report 7804964-5 (Version None)
Quarter: 2011Q4

REPORT INFORMATION
  Report Type: 
  Country: None (occurrence: None)
  Receive Date: 20111010
  Receipt Date: 20111006
  Transmission Date: 20120403
  Serious: Yes (Death, Other)
  Sender: FDA-Public Use
  Company Number: PHHY2011JP80872

PATIENT
  Sex: Male
  Weight: 61 kg

DRUGS (5)
  1. CISPLATIN [Suspect]
     Dosage: 60 MG/M2, UNK
     Dates: start: 20030101
  2. S-1 [Suspect]
     Dosage: 100 MG PER DAY
     Dates: start: 20040610
  3. S-1 [Suspect]
     Dosage: 120 MG PER DAY
     Dates: start: 20031120
  4. PACLITAXEL [Suspect]
     Dosage: 20 MG/M2, UNK
     Route: 033
  5. PACLITAXEL [Suspect]
     Indication: METASTATIC NEOPLASM
     Dosage: 60 MG/M2, UNK
     Dates: start: 20040329

REACTIONS (11)
  - LYMPHADENOPATHY [None]
  - NAUSEA [None]
  - NEOPLASM MALIGNANT [None]
  - LEUKOPENIA [None]
  - DEATH [None]
  - JAUNDICE CHOLESTATIC [None]
  - ASCITES [None]
  - ANAEMIA [None]
  - ALOPECIA [None]
  - HEPATIC FUNCTION ABNORMAL [None]
  - PLEURAL EFFUSION [None]
